FAERS Safety Report 5725086-3 (Version None)
Quarter: 2008Q2

REPORT INFORMATION
  Report Type: 
  Country: None (occurrence: None)
  Receive Date: 20080501
  Receipt Date: 20080417
  Transmission Date: 20081010
  Serious: Yes (Other)
  Sender: FDA-Public Use
  Company Number: CA-AMGEN-US272763

PATIENT
  Sex: Male

DRUGS (7)
  1. PANITUMUMAB [Suspect]
     Indication: COLORECTAL CANCER
     Route: 042
     Dates: start: 20070927
  2. OXALIPLATIN [Suspect]
     Route: 042
  3. LEUCOVORIN CALCIUM [Suspect]
     Route: 042
  4. FLUOROURACIL [Suspect]
     Route: 042
  5. ONDANSETRON [Concomitant]
     Dates: start: 20070927
  6. DECADRON [Concomitant]
     Dates: start: 20070727
  7. TYLENOL [Concomitant]
     Dates: start: 20071231

REACTIONS (1)
  - PULMONARY ARTERY THROMBOSIS [None]
